FAERS Safety Report 4719979-3 (Version None)
Quarter: 2005Q3

REPORT INFORMATION
  Report Type: 
  Country: None (occurrence: None)
  Receive Date: 20050721
  Receipt Date: 20040308
  Transmission Date: 20060218
  Serious: No
  Sender: FDA-Public Use
  Company Number: US-GLAXOSMITHKLINE-A0501606A

PATIENT
  Age: 49 Year
  Sex: Female

DRUGS (5)
  1. IMITREX [Suspect]
     Indication: MIGRAINE
     Dosage: 50MG AS REQUIRED
     Route: 048
  2. ALEVE [Concomitant]
  3. INDERAL [Concomitant]
  4. SYNTHROID [Concomitant]
  5. LIPITOR [Concomitant]

REACTIONS (8)
  - ARTHRALGIA [None]
  - DRUG INEFFECTIVE [None]
  - HEADACHE [None]
  - HYPOAESTHESIA [None]
  - NASAL CONGESTION [None]
  - NAUSEA [None]
  - SWELLING FACE [None]
  - VOMITING [None]
